FAERS Safety Report 22624838 (Version 1)
Quarter: 2023Q2

REPORT INFORMATION
  Report Type: Spontaneous
  Country: DE (occurrence: DE)
  Receive Date: 20230621
  Receipt Date: 20230621
  Transmission Date: 20230722
  Serious: Yes (Death, Life-Threatening, Hospitalization, Other)
  Sender: FDA-Public Use
  Company Number: None

PATIENT
  Age: 81 Year
  Sex: Female

DRUGS (75)
  1. CALCIUM [Suspect]
     Active Substance: CALCIUM
     Dosage: UNK
     Route: 042
     Dates: start: 20050214, end: 20050215
  2. CALCIUM [Suspect]
     Active Substance: CALCIUM
     Dosage: UNK
     Route: 042
     Dates: start: 20050303, end: 20050303
  3. CALCIUM [Suspect]
     Active Substance: CALCIUM
     Indication: Product used for unknown indication
     Dosage: 20 ML, QD
     Route: 042
     Dates: start: 20050201, end: 20050203
  4. TUTOFUSIN [AMINO ACIDS NOS;ELECTROLYTES NOS;VITAMINS NOS] [Concomitant]
     Dosage: UNK
     Dates: start: 20050126
  5. CASPOFUNGIN [Suspect]
     Active Substance: CASPOFUNGIN
     Indication: Candida infection
     Dosage: 70 MG, QD
     Route: 042
     Dates: start: 20050209, end: 20050215
  6. CASPOFUNGIN [Suspect]
     Active Substance: CASPOFUNGIN
     Dosage: 50 MG, QD
     Route: 042
     Dates: start: 20050224, end: 20050303
  7. ASPIRIN [Suspect]
     Active Substance: ASPIRIN
     Dosage: 500 MG, QD
     Route: 042
     Dates: start: 20050216
  8. ASPIRIN [Suspect]
     Active Substance: ASPIRIN
     Dosage: 500 MG, QD
     Route: 042
     Dates: start: 20050214
  9. ASPIRIN [Suspect]
     Active Substance: ASPIRIN
     Dosage: 500 MG, QD
     Route: 042
     Dates: start: 20050212
  10. ASPIRIN [Suspect]
     Active Substance: ASPIRIN
     Dosage: 500 MG, QD
     Route: 042
     Dates: start: 20050208
  11. ASPIRIN [Suspect]
     Active Substance: ASPIRIN
     Dosage: 500 MG, QD
     Route: 042
     Dates: start: 20050210
  12. ASPIRIN [Suspect]
     Active Substance: ASPIRIN
     Indication: Thrombosis
     Dosage: 1500 MG, QD
     Route: 042
     Dates: start: 20050128, end: 20050206
  13. HETASTARCH [Suspect]
     Active Substance: HETASTARCH
     Dosage: UNK
     Route: 042
     Dates: start: 20050226, end: 20050228
  14. HETASTARCH [Suspect]
     Active Substance: HETASTARCH
     Dosage: DOSE: 5-0
     Route: 042
     Dates: start: 20050207, end: 20050209
  15. HETASTARCH [Suspect]
     Active Substance: HETASTARCH
     Indication: Product used for unknown indication
     Dosage: FORM: INFUSION, DOSE: 130/0
     Route: 042
     Dates: start: 20050201, end: 20050203
  16. HETASTARCH [Suspect]
     Active Substance: HETASTARCH
     Dosage: UNK
     Route: 042
     Dates: start: 20050302
  17. HETASTARCH [Suspect]
     Active Substance: HETASTARCH
     Dosage: 51 (UNITS NOT REPORTED)
     Route: 042
     Dates: start: 20050215, end: 20050215
  18. HETASTARCH [Suspect]
     Active Substance: HETASTARCH
     Dosage: DOSE: 51-2 (UNITS NOT REPORTED)
     Route: 042
     Dates: start: 20050213, end: 20050213
  19. HETASTARCH [Suspect]
     Active Substance: HETASTARCH
     Dosage: UNK
     Route: 042
     Dates: start: 20050221, end: 20050223
  20. SUFENTANIL [Suspect]
     Active Substance: SUFENTANIL
     Indication: Analgesic therapy
     Dosage: UNK
     Route: 042
     Dates: start: 20050203, end: 20050213
  21. PIPERACILLIN [Suspect]
     Active Substance: PIPERACILLIN
     Indication: Product used for unknown indication
     Dosage: 12 G, QD
     Route: 042
     Dates: start: 20050127, end: 20050215
  22. METOCLOPRAMIDE [Suspect]
     Active Substance: METOCLOPRAMIDE
     Indication: Nausea
     Dosage: DOSE: 3X1 AMP
     Route: 042
     Dates: start: 20050205, end: 20050208
  23. METOCLOPRAMIDE [Suspect]
     Active Substance: METOCLOPRAMIDE
     Dosage: UNK
     Route: 042
     Dates: start: 20050216, end: 20050219
  24. VANCOMYCIN [Suspect]
     Active Substance: VANCOMYCIN
     Dosage: UNK
     Route: 042
     Dates: start: 20050224, end: 20050224
  25. VANCOMYCIN [Suspect]
     Active Substance: VANCOMYCIN
     Indication: Product used for unknown indication
     Dosage: 1 G, QD
     Route: 042
     Dates: end: 20050206
  26. VANCOMYCIN [Suspect]
     Active Substance: VANCOMYCIN
     Dosage: UNK
     Route: 042
     Dates: start: 20050302
  27. VANCOMYCIN [Suspect]
     Active Substance: VANCOMYCIN
     Dosage: 0.5 G, QD
     Route: 042
     Dates: start: 20050209, end: 20050221
  28. METRONIDAZOLE [METRONIDAZOLE HYDROCHLORIDE] [Concomitant]
     Indication: Small intestinal perforation
     Dosage: 1 G, QD
     Route: 042
     Dates: start: 20050224, end: 20050303
  29. NOREPINEPHRINE HYDROCHLORIDE, (+/-)- [Suspect]
     Active Substance: NOREPINEPHRINE HYDROCHLORIDE, (+/-)-
     Dosage: UNK
     Route: 042
     Dates: start: 20050224, end: 20050303
  30. NOREPINEPHRINE HYDROCHLORIDE, (+/-)- [Suspect]
     Active Substance: NOREPINEPHRINE HYDROCHLORIDE, (+/-)-
     Dosage: UNK
     Route: 042
     Dates: start: 20050208, end: 20050217
  31. NOREPINEPHRINE HYDROCHLORIDE, (+/-)- [Suspect]
     Active Substance: NOREPINEPHRINE HYDROCHLORIDE, (+/-)-
     Indication: Product used for unknown indication
     Dosage: UNK
     Route: 042
     Dates: start: 20050126, end: 20050203
  32. DIGITOXIN [Concomitant]
     Active Substance: DIGITOXIN
     Dosage: UNK
     Dates: start: 20050202
  33. ALBUMIN HUMAN [Suspect]
     Active Substance: ALBUMIN HUMAN
     Dosage: DOSE: 2X100ML
     Route: 042
     Dates: start: 20050208, end: 20050210
  34. ALBUMIN HUMAN [Suspect]
     Active Substance: ALBUMIN HUMAN
     Indication: Product used for unknown indication
     Dosage: DOSE: 3X100 ML
     Route: 042
     Dates: start: 20050203, end: 20050205
  35. NOVALGIN (METAMIZOLE SODIUM) [Suspect]
     Active Substance: METAMIZOLE SODIUM
     Dosage: 1 G, QD
     Route: 042
     Dates: start: 20230302, end: 20230302
  36. NOVALGIN (METAMIZOLE SODIUM) [Suspect]
     Active Substance: METAMIZOLE SODIUM
     Indication: Pain
     Dosage: 5 G, QD
     Route: 042
     Dates: start: 20050217, end: 20050226
  37. SULBACTAM SODIUM [Suspect]
     Active Substance: SULBACTAM SODIUM
     Indication: Product used for unknown indication
     Dosage: 1.5 G, QD
     Route: 042
     Dates: start: 20050127, end: 20050215
  38. DOBUTAMINE [Suspect]
     Active Substance: DOBUTAMINE HYDROCHLORIDE
     Indication: Product used for unknown indication
     Dosage: UNK
     Route: 042
     Dates: start: 20050126, end: 20050203
  39. DOBUTAMINE [Suspect]
     Active Substance: DOBUTAMINE HYDROCHLORIDE
     Dosage: UNK
     Route: 042
     Dates: start: 20050209, end: 20050217
  40. CEFOTAXIME [Concomitant]
     Active Substance: CEFOTAXIME SODIUM
     Dosage: UNK
     Dates: start: 20050126
  41. CYTOBION [Concomitant]
     Dosage: 1000 ?G
     Route: 042
     Dates: start: 20050225, end: 20050227
  42. METOPROLOL TARTRATE [Concomitant]
     Active Substance: METOPROLOL TARTRATE
     Indication: Cardiac failure
     Dosage: UNK
     Route: 042
     Dates: start: 20050228, end: 20050303
  43. FLUIMUCIL [Suspect]
     Active Substance: ACETYLCYSTEINE
     Indication: Product used for unknown indication
     Dosage: UNK
     Route: 042
     Dates: start: 20050126, end: 20050302
  44. HYDROCORTISONE [Concomitant]
     Active Substance: HYDROCORTISONE
     Dosage: 60 MG
     Route: 042
     Dates: start: 20050202, end: 20050206
  45. FUROSEMIDE [Suspect]
     Active Substance: FUROSEMIDE
     Dosage: STRENGTH: 125 MG, DOSE: 4 X 10MG
     Route: 042
     Dates: start: 20050224, end: 20050227
  46. FUROSEMIDE [Suspect]
     Active Substance: FUROSEMIDE
     Indication: Polyuria
     Dosage: STRENGTH: 125 MG, DOSE: 4X20MG
     Route: 042
     Dates: start: 20050204, end: 20050216
  47. POTASSIUM CHLORIDE [Concomitant]
     Active Substance: POTASSIUM CHLORIDE
     Indication: Hypokalaemia
     Dosage: DOSE: 50MVAL
     Route: 042
     Dates: start: 20050301, end: 20050303
  48. DIFLUCAN [Suspect]
     Active Substance: FLUCONAZOLE
     Indication: Fungal infection
     Dosage: UNK
     Route: 042
     Dates: start: 20050131, end: 20050210
  49. HEPARIN SODIUM [Suspect]
     Active Substance: HEPARIN SODIUM
     Indication: Thrombosis
     Dosage: STRENGTH: 10000IE
     Route: 042
     Dates: start: 20050128, end: 20050216
  50. LEVOFLOXACIN [Concomitant]
     Active Substance: LEVOFLOXACIN
     Indication: Small intestinal perforation
     Dosage: 500 MG, BID
     Route: 042
     Dates: start: 20050224, end: 20050303
  51. ERYTHROMYCIN [Suspect]
     Active Substance: ERYTHROMYCIN
     Indication: Product used for unknown indication
     Dosage: 300 MG, QD
     Route: 042
     Dates: start: 20050205, end: 20050207
  52. ERYTHROMYCIN [Suspect]
     Active Substance: ERYTHROMYCIN
     Dosage: 400 MG, QD
     Route: 042
     Dates: start: 20050214, end: 20050219
  53. DIGITOXIN [Concomitant]
     Active Substance: DIGITOXIN
     Dosage: UNK
     Dates: start: 20050126
  54. ENOXAPARIN SODIUM [Suspect]
     Active Substance: ENOXAPARIN SODIUM
     Indication: Thrombosis
     Dosage: 40 MG, QD
     Route: 058
     Dates: start: 20050217, end: 20050303
  55. FOLIC ACID [Concomitant]
     Active Substance: FOLIC ACID
     Dosage: UNK
     Route: 042
     Dates: start: 20050226, end: 20050303
  56. VERAPAMIL [Concomitant]
     Active Substance: VERAPAMIL HYDROCHLORIDE
     Dosage: UNK
     Dates: start: 20050127
  57. MIDAZOLAM [Suspect]
     Active Substance: MIDAZOLAM
     Indication: Sedation
     Dosage: 45 MG
     Route: 042
     Dates: start: 20050201, end: 20050213
  58. INSULIN HUMAN [Suspect]
     Active Substance: INSULIN HUMAN
     Indication: Blood glucose abnormal
     Dosage: STRENGTH: 50IE
     Route: 042
     Dates: start: 20050126, end: 20050303
  59. CALCIUM ACETATE;MAGNESIUM ACETATE;POTASSIUM ACETATE;SODIUM ACETATE;SOD [Concomitant]
     Indication: Fluid replacement
     Dosage: DRUG: JONO
     Route: 042
     Dates: start: 20050301, end: 20050303
  60. PIRITRAMIDE [Suspect]
     Active Substance: PIRITRAMIDE
     Indication: Pain
     Dosage: DOSE: 2X45 30 MG 40 MG
     Route: 042
     Dates: start: 20050214, end: 20050216
  61. LINEZOLID [Concomitant]
     Active Substance: LINEZOLID
     Dosage: UNK
     Dates: start: 20050304
  62. AMINO ACIDS\CARBOHYDRATES\MINERALS\SOYBEAN OIL\VITAMINS [Suspect]
     Active Substance: AMINO ACIDS\CARBOHYDRATES\MINERALS\SOYBEAN OIL\VITAMINS
     Indication: Product used for unknown indication
     Dosage: 250 ML
     Route: 048
     Dates: start: 20050205, end: 20050224
  63. FERRLECIT [Concomitant]
     Active Substance: SODIUM FERRIC GLUCONATE COMPLEX
     Dosage: UNK
     Route: 042
     Dates: start: 20050225, end: 20050303
  64. SPIRONOLACTONE [Suspect]
     Active Substance: SPIRONOLACTONE
     Indication: Oedema
     Dosage: 200 MG, QD
     Route: 042
     Dates: start: 20050206, end: 20050303
  65. CLINOMEL [Concomitant]
     Active Substance: AMINO ACIDS\DEXTROSE\ELECTROLYTES NOS\SOYBEAN OIL
     Dosage: 1000 ML
     Route: 042
     Dates: start: 20050129, end: 20050206
  66. PROPOFOL [Concomitant]
     Active Substance: PROPOFOL
     Dosage: UNK
     Dates: start: 20050126
  67. FENOTEROL HYDROBROMIDE\IPRATROPIUM BROMIDE [Concomitant]
     Active Substance: FENOTEROL HYDROBROMIDE\IPRATROPIUM BROMIDE
     Indication: Dyspnoea
     Dosage: DOSE: 4X2   ROA-RESPIRATORY(INHALATION)
     Dates: start: 20050201, end: 20050206
  68. DEXTROSE [Suspect]
     Active Substance: DEXTROSE\DEXTROSE MONOHYDRATE
     Indication: Product used for unknown indication
     Dosage: 100 ML STRENGTH: 40%, 20%.
     Route: 042
     Dates: start: 20050206, end: 20050218
  69. OMEPRAZOLE [Suspect]
     Active Substance: OMEPRAZOLE
     Indication: Prophylaxis
     Dosage: 40 MG, QD
     Route: 042
     Dates: start: 20050127, end: 20050303
  70. POTASSIUM CHLORIDE [Concomitant]
     Active Substance: POTASSIUM CHLORIDE
     Dosage: UNK
     Route: 042
  71. PERIAMIN X [Suspect]
     Active Substance: AMINO ACIDS\ELECTROLYTES NOS\XYLITOL
     Indication: Product used for unknown indication
     Dosage: UNK
     Route: 042
     Dates: start: 20050224, end: 20050224
  72. KONAKION [Concomitant]
     Active Substance: PHYTONADIONE
     Dosage: DOSE: 2X10
     Route: 042
     Dates: start: 20050207, end: 20050207
  73. CLEMASTINE [Concomitant]
     Active Substance: CLEMASTINE
     Indication: Pruritus
     Dosage: UNK
     Route: 042
     Dates: start: 20050303, end: 20050303
  74. CLONIDINE [Concomitant]
     Active Substance: CLONIDINE
     Dosage: UNK
     Dates: start: 20050131
  75. RANITIDINE [Concomitant]
     Active Substance: RANITIDINE
     Dosage: UNK
     Dates: start: 20050126

REACTIONS (7)
  - Toxic epidermal necrolysis [Fatal]
  - Stevens-Johnson syndrome [Fatal]
  - Epidermolysis [Fatal]
  - Dermatitis bullous [Fatal]
  - Rash [Fatal]
  - Urticaria [Fatal]
  - Sepsis [Fatal]

NARRATIVE: CASE EVENT DATE: 20050223
